FAERS Safety Report 17297002 (Version 3)
Quarter: 2020Q1

REPORT INFORMATION
  Report Type: Spontaneous
  Country: US (occurrence: US)
  Receive Date: 20200121
  Receipt Date: 20200305
  Transmission Date: 20200409
  Serious: Yes (Other)
  Sender: FDA-Public Use
  Company Number: US-JNJFOC-20200118540

PATIENT
  Age: 69 Year
  Sex: Female
  Weight: 39.73 kg

DRUGS (2)
  1. DURAGESIC [Suspect]
     Active Substance: FENTANYL
     Indication: PAIN
     Route: 062
  2. DURAGESIC [Suspect]
     Active Substance: FENTANYL
     Route: 062

REACTIONS (7)
  - Therapy change [Unknown]
  - Product dose omission [Unknown]
  - Product complaint [Unknown]
  - Body height decreased [Unknown]
  - Mental disorder [Unknown]
  - Blindness [Unknown]
  - Acne [Unknown]

NARRATIVE: CASE EVENT DATE: 202001
